FAERS Safety Report 11618367 (Version 1)
Quarter: 2015Q4

REPORT INFORMATION
  Report Type: Report from Study
  Country: US (occurrence: US)
  Receive Date: 20151012
  Receipt Date: 20151012
  Transmission Date: 20160304
  Serious: Yes (Other)
  Sender: FDA-Public Use
  Company Number: PHEH2015US020050

PATIENT
  Sex: Female

DRUGS (2)
  1. MIRENA [Suspect]
     Active Substance: LEVONORGESTREL
     Indication: CONTRACEPTION
     Route: 065
  2. GILENYA [Suspect]
     Active Substance: FINGOLIMOD HYDROCHLORIDE
     Indication: MULTIPLE SCLEROSIS
     Dosage: 0.5 MG, QD
     Route: 048
     Dates: start: 201403, end: 201503

REACTIONS (6)
  - Respiratory tract infection [Recovered/Resolved]
  - Influenza [Recovered/Resolved]
  - Weight decreased [Recovered/Resolved]
  - Alopecia [Recovered/Resolved]
  - Bronchitis [Recovered/Resolved]
  - Decreased appetite [Recovered/Resolved]
